FAERS Safety Report 16214173 (Version 1)
Quarter: 2019Q2

REPORT INFORMATION
  Report Type: Spontaneous
  Country: US (occurrence: US)
  Receive Date: 20190418
  Receipt Date: 20190418
  Transmission Date: 20190711
  Serious: No
  Sender: FDA-Public Use
  Company Number: US-SA-2019SA103718

PATIENT
  Age: 71 Year
  Sex: Male

DRUGS (3)
  1. TYLENOL [Concomitant]
     Active Substance: ACETAMINOPHEN
     Indication: ARTHRITIS
  2. COUMADIN [Concomitant]
     Active Substance: WARFARIN SODIUM
  3. LOVENOX [Suspect]
     Active Substance: ENOXAPARIN SODIUM
     Dosage: 0.73 ML, BID
     Dates: start: 20190331

REACTIONS (2)
  - Hepatic enzyme increased [Unknown]
  - Injection site bruising [Unknown]
